FAERS Safety Report 5505607-6 (Version None)
Quarter: 2007Q4

REPORT INFORMATION
  Report Type: 
  Country: None (occurrence: None)
  Receive Date: 20071102
  Receipt Date: 20071029
  Transmission Date: 20080405
  Serious: Yes (Other)
  Sender: FDA-Public Use
  Company Number: LB-BRISTOL-MYERS SQUIBB COMPANY-13941505

PATIENT

DRUGS (1)
  1. ERBITUX [Suspect]

REACTIONS (1)
  - BLOOD BILIRUBIN INCREASED [None]
